FAERS Safety Report 7396870-8 (Version None)
Quarter: 2011Q1

REPORT INFORMATION
  Report Type: 
  Country: None (occurrence: None)
  Receive Date: 20110331
  Receipt Date: 20110331
  Transmission Date: 20110831
  Serious: Yes (Hospitalization)
  Sender: FDA-Public Use
  Company Number: None

PATIENT
  Age: 36 Year
  Sex: Female
  Weight: 56.6996 kg

DRUGS (1)
  1. HEALTHY SKIN FACE LOTION SPF 15 WITH ALPHA-HYDROXY NEUTROGENA [Suspect]
     Dosage: TWICE A DAY
     Dates: start: 20110302, end: 20110304

REACTIONS (3)
  - SWELLING FACE [None]
  - ERYTHEMA [None]
  - PRURITUS [None]
